FAERS Safety Report 7292971-3 (Version None)
Quarter: 2011Q1

REPORT INFORMATION
  Report Type: 
  Country: None (occurrence: None)
  Receive Date: 20110215
  Receipt Date: 20110208
  Transmission Date: 20110831
  Serious: Yes (Hospitalization, Other)
  Sender: FDA-Public Use
  Company Number: FR-JNJFOC-20110203039

PATIENT
  Age: 46 Year
  Sex: Female

DRUGS (3)
  1. MICONAZOLE [Suspect]
     Route: 048
  2. ACENOCOUMAROL [Interacting]
     Indication: PHLEBITIS
     Route: 065
  3. MICONAZOLE [Suspect]
     Indication: ORAL CANDIDIASIS
     Route: 048

REACTIONS (4)
  - PYREXIA [None]
  - PROTHROMBIN LEVEL DECREASED [None]
  - DRUG INTERACTION [None]
  - HAEMATOMA [None]
